FAERS Safety Report 6682526-3 (Version None)
Quarter: 2010Q2

REPORT INFORMATION
  Report Type: 
  Country: None (occurrence: None)
  Receive Date: 20100415
  Receipt Date: 20100405
  Transmission Date: 20101027
  Serious: Yes (Other)
  Sender: FDA-Public Use
  Company Number: JP-SANOFI-AVENTIS-2010SA013352

PATIENT
  Age: 58 Year
  Sex: Female
  Weight: 58 kg

DRUGS (6)
  1. ENOXAPARIN SODIUM [Suspect]
     Dates: start: 20100216, end: 20100221
  2. PANSPORIN [Concomitant]
     Dates: start: 20100215, end: 20100219
  3. MUCOSTA [Concomitant]
     Dates: start: 20100216, end: 20100228
  4. LOXONIN [Concomitant]
     Dates: start: 20100216, end: 20100228
  5. IRZAIM [Concomitant]
     Dates: start: 20100216, end: 20100228
  6. FERROMIA [Concomitant]
     Dates: start: 20100216

REACTIONS (1)
  - HEPATIC FUNCTION ABNORMAL [None]
